FAERS Safety Report 21508036 (Version 1)
Quarter: 2022Q4

REPORT INFORMATION
  Report Type: Spontaneous
  Country: US (occurrence: None)
  Receive Date: 20221025
  Receipt Date: 20221025
  Transmission Date: 20230112
  Serious: Yes (Other)
  Sender: FDA-Public Use
  Company Number: None

PATIENT
  Age: 67 Year
  Sex: Female
  Weight: 66.15 kg

DRUGS (1)
  1. VENTOLIN HFA [Suspect]
     Active Substance: ALBUTEROL SULFATE
     Indication: Dyspnoea
     Dosage: OTHER STRENGTH : MCG;?OTHER QUANTITY : 2 PUFF(S);?FREQUENCY : AS NEEDED;?
     Route: 055
     Dates: start: 20220927, end: 20221004

REACTIONS (4)
  - Oral candidiasis [None]
  - Tongue blistering [None]
  - Product use complaint [None]
  - Product communication issue [None]
